FAERS Safety Report 5353617-4 (Version None)
Quarter: 2007Q2

REPORT INFORMATION
  Report Type: 
  Country: None (occurrence: None)
  Receive Date: 20070612
  Receipt Date: 20070605
  Transmission Date: 20071010
  Serious: Yes (Other)
  Sender: FDA-Public Use
  Company Number: US-ASTRAZENECA-2007UW13579

PATIENT
  Age: 9 Year
  Sex: Male

DRUGS (1)
  1. PULMICORT [Suspect]
     Dosage: 2 PUFFS ONCE A DAY
     Route: 055

REACTIONS (1)
  - TOOTH DISCOLOURATION [None]
